FAERS Safety Report 8221514-2 (Version None)
Quarter: 2012Q1

REPORT INFORMATION
  Report Type: 
  Country: None (occurrence: None)
  Receive Date: 20120320
  Receipt Date: 20120307
  Transmission Date: 20120608
  Serious: Yes (Hospitalization)
  Sender: FDA-Public Use
  Company Number: RO-TEVA-328336ISR

PATIENT
  Age: 43 Year
  Sex: Female

DRUGS (4)
  1. DOXORUBICIN HCL [Suspect]
     Indication: LYMPHOMA
  2. PREDNISONE [Suspect]
     Indication: LYMPHOMA
  3. VINCRISTINE [Suspect]
     Indication: LYMPHOMA
  4. CYCLOPHOSPHAMIDE [Suspect]
     Indication: LYMPHOMA

REACTIONS (5)
  - HEPATIC FAILURE [None]
  - THROMBOCYTOPENIA [None]
  - ANAEMIA [None]
  - PARAPLEGIA [None]
  - BORRELIA INFECTION [None]
